FAERS Safety Report 13717038 (Version 1)
Quarter: 2017Q3

REPORT INFORMATION
  Report Type: Spontaneous
  Country: DE (occurrence: DE)
  Receive Date: 20170705
  Receipt Date: 20170705
  Transmission Date: 20171127
  Serious: Yes (Other)
  Sender: FDA-Public Use
  Company Number: DE-TEVA-781208GER

PATIENT
  Sex: Male

DRUGS (2)
  1. OLANZAPIN [Suspect]
     Active Substance: OLANZAPINE
     Route: 048
  2. OLANZAPIN [Suspect]
     Active Substance: OLANZAPINE
     Route: 048
     Dates: start: 201706

REACTIONS (3)
  - Anxiety [Unknown]
  - Acute psychosis [Unknown]
  - Headache [Unknown]

NARRATIVE: CASE EVENT DATE: 201706
